FAERS Safety Report 8351296 (Version 8)
Quarter: 2013Q2

REPORT INFORMATION
  Report Type: Report from Study
  Country: DE (occurrence: DE)
  Receive Date: 20120124
  Receipt Date: 20130422
  Transmission Date: 20140414
  Serious: Yes (Hospitalization)
  Sender: FDA-Public Use
  Company Number: PHHY2010DE11784

PATIENT
  Age: 43 Year
  Sex: Female

DRUGS (2)
  1. EXTAVIA [Suspect]
     Indication: MULTIPLE SCLEROSIS
     Dosage: 4 MIU, QOD
     Route: 058
     Dates: start: 201002
  2. EXTAVIA [Suspect]
     Dosage: 8 MIU, QOD
     Route: 058
     Dates: start: 20100210

REACTIONS (29)
  - Circulatory collapse [Recovered/Resolved]
  - Loss of consciousness [Recovered/Resolved]
  - Cardiac valve disease [Recovered/Resolved]
  - Tachycardia [Recovered/Resolved]
  - Hypertension [Recovered/Resolved]
  - Furuncle [Recovered/Resolved]
  - Fungal infection [Recovered/Resolved]
  - Fear [Not Recovered/Not Resolved]
  - Gastroenteritis [Recovered/Resolved]
  - Muscular weakness [Recovered/Resolved]
  - Swelling face [Recovered/Resolved]
  - Eye swelling [Recovered/Resolved]
  - Feeling abnormal [Recovered/Resolved]
  - Mental disorder [Recovered/Resolved]
  - Lymphadenopathy [Recovered/Resolved]
  - Anxiety [Recovered/Resolved]
  - Nausea [Recovered/Resolved]
  - Weight decreased [Recovered/Resolved]
  - Dizziness [Recovered/Resolved]
  - Pruritus [Recovered/Resolved]
  - Injection site inflammation [Recovered/Resolved]
  - Injection site induration [Recovered/Resolved]
  - Injection site atrophy [Not Recovered/Not Resolved]
  - Inflammation [Not Recovered/Not Resolved]
  - Local swelling [Recovering/Resolving]
  - Confusional state [Unknown]
  - Pain [Recovering/Resolving]
  - Joint swelling [Recovering/Resolving]
  - Mass [Not Recovered/Not Resolved]
